FAERS Safety Report 22627222 (Version 4)
Quarter: 2024Q2

REPORT INFORMATION
  Report Type: Spontaneous
  Country: NL (occurrence: NL)
  Receive Date: 20230622
  Receipt Date: 20240416
  Transmission Date: 20240715
  Serious: Yes (Life-Threatening, Hospitalization, Other)
  Sender: FDA-Public Use
  Company Number: NL-GLAXOSMITHKLINE-NL2023GSK078911

PATIENT
  Age: 48 Year
  Sex: Female

DRUGS (10)
  1. ARIPIPRAZOLE [Suspect]
     Active Substance: ARIPIPRAZOLE
     Indication: Mental disorder
     Dosage: 630 MILLIGRAM, TOTAL
     Route: 048
  2. ARIPIPRAZOLE [Suspect]
     Active Substance: ARIPIPRAZOLE
     Dosage: 30 MILLIGRAM, ONCE A DAY (30MG ONCE DAILY)
     Route: 048
  3. LORAZEPAM [Suspect]
     Active Substance: LORAZEPAM
     Indication: Mental disorder
     Dosage: 21 MILLIGRAM, TOTAL
     Route: 048
  4. LORAZEPAM [Suspect]
     Active Substance: LORAZEPAM
     Dosage: 1 MILLIGRAM
     Route: 048
  5. TEMAZEPAM [Suspect]
     Active Substance: TEMAZEPAM
     Indication: Product used for unknown indication
     Dosage: 410 MILLIGRAM
     Route: 048
  6. TEMAZEPAM [Suspect]
     Active Substance: TEMAZEPAM
     Dosage: 20 MILLIGRAM, ONCE A DAY
     Route: 048
  7. LITHIUM [Suspect]
     Active Substance: LITHIUM
     Indication: Product used for unknown indication
     Dosage: 21 GRAM, TOTAL
     Route: 048
  8. LITHIUM [Suspect]
     Active Substance: LITHIUM
     Dosage: 1000 MILLIGRAM, ONCE A DAY
     Route: 048
  9. NORTRIPTYLINE [Suspect]
     Active Substance: NORTRIPTYLINE
     Indication: Mental disorder
     Dosage: 3675 MILLIGRAM, TOTAL (25MG ONCE DAILY)
     Route: 048
  10. NORTRIPTYLINE [Suspect]
     Active Substance: NORTRIPTYLINE
     Dosage: 3675 MILLIGRAM, TOTAL (25MG ONCE DAILY)
     Route: 048

REACTIONS (9)
  - Gastrointestinal hypomotility [Recovered/Resolved]
  - Toxicity to various agents [Recovered/Resolved]
  - Electrocardiogram QRS complex prolonged [Recovered/Resolved]
  - Somnolence [Recovered/Resolved]
  - Vomiting [Recovered/Resolved]
  - Suicide attempt [Recovered/Resolved]
  - Gastrointestinal motility disorder [Unknown]
  - Intentional overdose [Unknown]
  - Drug ineffective [Unknown]
